FAERS Safety Report 15894472 (Version 1)
Quarter: 2019Q1

REPORT INFORMATION
  Report Type: Spontaneous
  Country: CA (occurrence: CA)
  Receive Date: 20190131
  Receipt Date: 20190131
  Transmission Date: 20190417
  Serious: Yes (Other)
  Sender: FDA-Public Use
  Company Number: CA-LUPIN PHARMACEUTICALS INC.-2019-00404

PATIENT
  Age: 28 Year
  Sex: Female

DRUGS (1)
  1. OXYCODONE AND ACETAMINOPHEN [Suspect]
     Active Substance: ACETAMINOPHEN\OXYCODONE HYDROCHLORIDE
     Indication: PRODUCT USED FOR UNKNOWN INDICATION
     Dosage: INTRANASAL USE OF CRUSHED OXYCODONE AND ACETAMINOPHEN COMBINATION
     Route: 045

REACTIONS (3)
  - Velopharyngeal incompetence [Unknown]
  - Nasal septum perforation [Recovered/Resolved]
  - Drug abuse [Unknown]
